FAERS Safety Report 8830291 (Version 2)
Quarter: 2013Q1

REPORT INFORMATION
  Report Type: Spontaneous
  Country: US (occurrence: US)
  Receive Date: 20121009
  Receipt Date: 20130102
  Transmission Date: 20140127
  Serious: Yes (Hospitalization, Congenital Anomaly, Other)
  Sender: FDA-Public Use
  Company Number: US-PFIZER INC-2012247538

PATIENT
  Sex: Male

DRUGS (10)
  1. ZOLOFT [Suspect]
     Indication: ANXIETY
     Dosage: UNK
     Route: 064
     Dates: start: 2007
  2. ZOLOFT [Suspect]
     Indication: DEPRESSION
  3. ZOLOFT [Suspect]
     Indication: AFFECTIVE DISORDER
  4. SERTRALINE HCL [Suspect]
     Indication: ANXIETY
     Dosage: UNK
     Route: 064
     Dates: start: 2007
  5. SERTRALINE HCL [Suspect]
     Indication: DEPRESSION
  6. SERTRALINE HCL [Suspect]
     Indication: AFFECTIVE DISORDER
  7. PRENATAL VITAMINS [Concomitant]
     Dosage: UNK
     Route: 064
  8. CHANTIX [Concomitant]
     Dosage: UNK
     Route: 064
  9. ESTROSTEP FE [Concomitant]
     Dosage: UNK
     Route: 064
  10. ORTHO TRI CYCLEN [Concomitant]
     Dosage: UNK
     Route: 064

REACTIONS (9)
  - Maternal exposure timing unspecified [Unknown]
  - Heart disease congenital [Unknown]
  - Congenital heart valve disorder [Unknown]
  - Patent ductus arteriosus [Unknown]
  - Congenital aortic dilatation [Unknown]
  - Cardiomyopathy [Unknown]
  - Left ventricular dysfunction [Unknown]
  - Feeding disorder [Unknown]
  - Developmental delay [Not Recovered/Not Resolved]
